FAERS Safety Report 10615586 (Version 2)
Quarter: 2015Q1

REPORT INFORMATION
  Report Type: Spontaneous
  Country: US (occurrence: US)
  Receive Date: 20141201
  Receipt Date: 20150112
  Transmission Date: 20150720
  Serious: No
  Sender: FDA-Public Use
  Company Number: US-PFIZER INC-2014325449

PATIENT
  Age: 55 Year
  Sex: Male
  Weight: 101.59 kg

DRUGS (2)
  1. NEURONTIN [Suspect]
     Active Substance: GABAPENTIN
     Indication: NEURALGIA
  2. NEURONTIN [Suspect]
     Active Substance: GABAPENTIN
     Indication: PAIN IN EXTREMITY
     Dosage: 300 MG, 3X/DAY

REACTIONS (6)
  - Balance disorder [Unknown]
  - Vertigo [Unknown]
  - Confusional state [Unknown]
  - Dizziness [Unknown]
  - Disturbance in attention [Unknown]
  - Fall [Unknown]
